FAERS Safety Report 5371185-8 (Version None)
Quarter: 2007Q2

REPORT INFORMATION
  Report Type: 
  Country: None (occurrence: None)
  Receive Date: 20070615
  Receipt Date: 20070207
  Transmission Date: 20071010
  Serious: Yes (Other)
  Sender: FDA-Public Use
  Company Number: 200710887US

PATIENT
  Age: 57 Year
  Sex: Male

DRUGS (6)
  1. LANTUS [Suspect]
     Indication: DIABETES MELLITUS INSULIN-DEPENDENT
     Dosage: 12 U
     Dates: start: 20070206
  2. LANTUS [Suspect]
     Indication: RENAL DISORDER
     Dosage: 12 U
     Dates: start: 20070206
  3. OPTICLIK [Suspect]
     Indication: DIABETES MELLITUS INSULIN-DEPENDENT
  4. REGULAR INSULIN [Concomitant]
  5. INSULIN INJECTION [Concomitant]
  6. ISOPHANE (NPH INSULIN) [Concomitant]

REACTIONS (2)
  - BLOOD GLUCOSE INCREASED [None]
  - HYPOGLYCAEMIA [None]
